FAERS Safety Report 18549818 (Version 2)
Quarter: 2020Q4

REPORT INFORMATION
  Report Type: Spontaneous
  Country: US (occurrence: US)
  Receive Date: 20201126
  Receipt Date: 20201130
  Transmission Date: 20210114
  Serious: Yes (Other)
  Sender: FDA-Public Use
  Company Number: US-PFIZER INC-2020457163

PATIENT
  Age: 84 Year
  Sex: Female

DRUGS (1)
  1. ZITHROMAX [Suspect]
     Active Substance: AZITHROMYCIN DIHYDRATE
     Indication: MYCOBACTERIUM AVIUM COMPLEX INFECTION
     Dosage: 500 MG, THREE TIMES A WEEK
     Route: 048

REACTIONS (2)
  - Product residue present [Unknown]
  - Off label use [Unknown]

NARRATIVE: CASE EVENT DATE: 202010
